FAERS Safety Report 11130609 (Version 1)
Quarter: 2015Q2

REPORT INFORMATION
  Report Type: Spontaneous
  Country: US (occurrence: None)
  Receive Date: 20150521
  Receipt Date: 20150521
  Transmission Date: 20150821
  Serious: Yes (Other)
  Sender: FDA-Public Use
  Company Number: None

PATIENT
  Age: 64 Year
  Sex: Female
  Weight: 104.33 kg

DRUGS (11)
  1. XARELTO [Suspect]
     Active Substance: RIVAROXABAN
     Indication: PULMONARY EMBOLISM
     Dosage: 1 A DAY ONCE DAILY TAKEN BY MOUTH
     Route: 048
     Dates: start: 20150219, end: 20150507
  2. DIOVAN [Concomitant]
     Active Substance: VALSARTAN
  3. MAGNESIUM [Concomitant]
     Active Substance: MAGNESIUM
  4. ASPIRIN. [Concomitant]
     Active Substance: ASPIRIN
  5. SINGULAIR [Concomitant]
     Active Substance: MONTELUKAST SODIUM
  6. METOPROAL [Concomitant]
  7. MUCINEX [Concomitant]
     Active Substance: GUAIFENESIN
  8. PROTONIX [Concomitant]
     Active Substance: PANTOPRAZOLE SODIUM
  9. TYLENOL [Concomitant]
     Active Substance: ACETAMINOPHEN
  10. NASONEX [Concomitant]
     Active Substance: MOMETASONE FUROATE
  11. LANTUS SOLOSTAR [Concomitant]
     Active Substance: INSULIN GLARGINE

REACTIONS (9)
  - Muscle spasms [None]
  - Skin haemorrhage [None]
  - Condition aggravated [None]
  - Muscle twitching [None]
  - Rash [None]
  - Arthralgia [None]
  - Pruritus [None]
  - Headache [None]
  - Chills [None]

NARRATIVE: CASE EVENT DATE: 20150501
